FAERS Safety Report 8810731 (Version 1)
Quarter: 2012Q4

REPORT INFORMATION
  Report Type: 
  Country: US (occurrence: US)
  Receive Date: 20120927
  Receipt Date: 20120927
  Transmission Date: 20130627
  Serious: No
  Sender: FDA-Public Use
  Company Number: US-PFIZER INC-2012237341

PATIENT
  Age: 72 Year
  Sex: Female
  Weight: 62.59 kg

DRUGS (5)
  1. SUTENT [Suspect]
     Indication: GASTROINTESTINAL NEOPLASM
     Dosage: 50 mg, 1x/day
     Route: 048
     Dates: start: 201105
  2. AMLODIPINE BESILATE / OLMESARTAN MEDOXOMIL [Concomitant]
     Indication: HYPERTENSION
     Dosage: UNK
  3. TEMAZEPAM [Concomitant]
     Indication: INSOMNIA
     Dosage: 15 mg, UNK
  4. BENADRYL [Concomitant]
     Indication: INSOMNIA
     Dosage: UNK
  5. MELATONIN [Concomitant]
     Dosage: UNK, as needed

REACTIONS (2)
  - Amnesia [Not Recovered/Not Resolved]
  - Disorientation [Not Recovered/Not Resolved]
